FAERS Safety Report 23919251 (Version 1)
Quarter: 2024Q2

REPORT INFORMATION
  Report Type: Spontaneous
  Country: US (occurrence: US)
  Receive Date: 20240530
  Receipt Date: 20240530
  Transmission Date: 20240716
  Serious: Yes (Other)
  Sender: FDA-Public Use
  Company Number: US-MYLANLABS-2024M1048538

PATIENT
  Age: 18 Year
  Sex: Female

DRUGS (16)
  1. AZITHROMYCIN [Suspect]
     Active Substance: AZITHROMYCIN
     Indication: Osteomyelitis bacterial
     Dosage: UNK
     Route: 048
  2. AZITHROMYCIN [Suspect]
     Active Substance: AZITHROMYCIN
     Indication: Mycobacterium abscessus infection
  3. CEFOXITIN [Suspect]
     Active Substance: CEFOXITIN SODIUM
     Indication: Osteomyelitis bacterial
     Dosage: UNK
     Route: 065
  4. CEFOXITIN [Suspect]
     Active Substance: CEFOXITIN SODIUM
     Indication: Mycobacterium abscessus infection
  5. LINEZOLID [Suspect]
     Active Substance: LINEZOLID
     Indication: Osteomyelitis bacterial
     Dosage: UNK
     Route: 048
  6. LINEZOLID [Suspect]
     Active Substance: LINEZOLID
     Indication: Mycobacterium abscessus infection
  7. AMIKACIN [Suspect]
     Active Substance: AMIKACIN
     Indication: Osteomyelitis bacterial
     Dosage: UNK
     Route: 042
  8. AMIKACIN [Suspect]
     Active Substance: AMIKACIN
     Indication: Mycobacterium abscessus infection
  9. AMIKACIN [Suspect]
     Active Substance: AMIKACIN
     Indication: Osteomyelitis bacterial
     Dosage: STARTED AGAIN
     Route: 065
  10. AMIKACIN [Suspect]
     Active Substance: AMIKACIN
     Indication: Mycobacterium abscessus infection
  11. IMIPENEM [Suspect]
     Active Substance: IMIPENEM
     Indication: Osteomyelitis bacterial
     Dosage: UNK
     Route: 042
  12. IMIPENEM [Suspect]
     Active Substance: IMIPENEM
     Indication: Mycobacterium abscessus infection
  13. OMADACYCLINE [Suspect]
     Active Substance: OMADACYCLINE
     Indication: Osteomyelitis bacterial
     Dosage: UNK
     Route: 065
  14. OMADACYCLINE [Suspect]
     Active Substance: OMADACYCLINE
     Indication: Mycobacterium abscessus infection
  15. CLOFAZIMINE [Suspect]
     Active Substance: CLOFAZIMINE
     Indication: Mycobacterium abscessus infection
     Dosage: UNK
     Route: 065
  16. CLOFAZIMINE [Suspect]
     Active Substance: CLOFAZIMINE
     Indication: Osteomyelitis bacterial

REACTIONS (1)
  - Drug ineffective [Unknown]
